FAERS Safety Report 22194279 (Version 2)
Quarter: 2023Q2

REPORT INFORMATION
  Report Type: Report from Study
  Country: US (occurrence: US)
  Receive Date: 20230411
  Receipt Date: 20230413
  Transmission Date: 20230722
  Serious: No
  Sender: FDA-Public Use
  Company Number: US-002147023-NVSC2023US082857

PATIENT
  Sex: Female

DRUGS (4)
  1. CLOBETASOL [Suspect]
     Active Substance: CLOBETASOL
     Indication: Psoriasis
     Dosage: UNK
     Route: 065
  2. TRIAMCINOLONE [Suspect]
     Active Substance: TRIAMCINOLONE
     Indication: Psoriasis
     Dosage: UNK
     Route: 065
  3. ATORVASTATIN [Suspect]
     Active Substance: ATORVASTATIN
     Indication: Psoriasis
     Dosage: UNK
     Route: 065
  4. LISINOPRIL [Suspect]
     Active Substance: LISINOPRIL
     Indication: Psoriasis
     Dosage: UNK
     Route: 065

REACTIONS (7)
  - Papule [Unknown]
  - Cyst [Unknown]
  - Skin lesion [Unknown]
  - Skin plaque [Unknown]
  - Skin exfoliation [Unknown]
  - Drug ineffective [Unknown]
  - Product use in unapproved indication [Unknown]
